FAERS Safety Report 7516827-3 (Version None)
Quarter: 2011Q2

REPORT INFORMATION
  Report Type: 
  Country: None (occurrence: None)
  Receive Date: 20110523
  Receipt Date: 20110510
  Transmission Date: 20111010
  Serious: Yes (Death)
  Sender: FDA-Public Use
  Company Number: ACO_22767_2011

PATIENT
  Age: 59 Year
  Sex: Female

DRUGS (8)
  1. AVASTIN /00848101/ (SIMVASTATIN) INFUSION [Concomitant]
  2. MALARONE (ATOVAQUONE, PROGUANIL HYDROCHLORIDE) TABLET [Concomitant]
  3. AMPYRA [Suspect]
     Indication: PRODUCT USED FOR UNKNOWN INDICATION
     Dosage: 10 MG, Q 12 HRS, ORAL
     Route: 048
     Dates: start: 20100512, end: 20100825
  4. LEXAPRO [Concomitant]
  5. ALIMTA (PEMETREXED DISODIUM) IV INJECTION [Concomitant]
  6. CARBOPLATIN [Concomitant]
  7. NEXIUM /01479302/ (ESOMEPRAZOLE MAGNESIUM) CAPSULE [Concomitant]
  8. MULTIVITAMINS (ASCORBIC ACID, ERGOCALCIFEROL, FOLIC ACID, NICOTINAMIDE [Concomitant]

REACTIONS (1)
  - DEATH [None]
